FAERS Safety Report 24332136 (Version 1)
Quarter: 2024Q3

REPORT INFORMATION
  Report Type: Spontaneous
  Country: US (occurrence: US)
  Receive Date: 20240918
  Receipt Date: 20240918
  Transmission Date: 20241017
  Serious: No
  Sender: COLLEGIUM PHARMACEUTICAL
  Company Number: US-COLLEGIUM PHARMACEUTICAL, INC.-20231100960

PATIENT

DRUGS (1)
  1. NUCYNTA ER [Suspect]
     Active Substance: TAPENTADOL HYDROCHLORIDE
     Indication: Neuralgia
     Dosage: 50 MILLIGRAM, UNKNOWN
     Route: 065
     Dates: start: 20231106, end: 202311

REACTIONS (12)
  - Myalgia [Not Recovered/Not Resolved]
  - Arthralgia [Not Recovered/Not Resolved]
  - Arthralgia [Not Recovered/Not Resolved]
  - Blepharospasm [Recovered/Resolved]
  - Hypoaesthesia [Recovered/Resolved]
  - Malaise [Recovered/Resolved]
  - Fatigue [Recovered/Resolved]
  - Pain in extremity [Not Recovered/Not Resolved]
  - Asthenia [Recovered/Resolved]
  - Toothache [Not Recovered/Not Resolved]
  - Peripheral swelling [Not Recovered/Not Resolved]
  - Pain in extremity [Not Recovered/Not Resolved]

NARRATIVE: CASE EVENT DATE: 20231101
